FAERS Safety Report 8507442-3 (Version None)
Quarter: 2012Q3

REPORT INFORMATION
  Report Type: 
  Country: None (occurrence: None)
  Receive Date: 20120712
  Receipt Date: 20120612
  Transmission Date: 20120928
  Serious: Yes (Life-Threatening, Hospitalization)
  Sender: FDA-Public Use
  Company Number: PHHO2011TR019201

PATIENT
  Sex: Female
  Weight: 44.5 kg

DRUGS (11)
  1. ACETAMINOPHEN [Suspect]
     Indication: PYREXIA
  2. AVIL [Concomitant]
     Dosage: 1 MG/KG, UNK
  3. ACETAMINOPHEN [Suspect]
     Indication: HEADACHE
     Dosage: UNK
     Dates: start: 20111111
  4. DESFERAL [Suspect]
     Indication: IRON OVERLOAD
     Dosage: 1000 MG/ DAY
     Dates: start: 20111104, end: 20111113
  5. ATERAX [Concomitant]
     Dosage: 25 MG/KG, UNK
  6. METHYLPREDNISOLONE [Concomitant]
     Dosage: 0.5 MG/KG, UNK
  7. CEFTRIAXONE [Concomitant]
  8. CALCIUM [Concomitant]
     Dosage: 12 CC, UNK
     Route: 042
  9. EXJADE [Suspect]
     Indication: IRON OVERLOAD
     Dosage: 1000 MG/ DAY
     Dates: start: 20111104, end: 20111113
  10. EXJADE [Suspect]
     Dosage: 10 MG/KG/ DAY
     Dates: start: 20111124, end: 20111124
  11. DESFERAL [Suspect]
     Dosage: UNK
     Dates: start: 20111129

REACTIONS (4)
  - CALCIUM DEFICIENCY [None]
  - INFECTION [None]
  - DRUG RASH WITH EOSINOPHILIA AND SYSTEMIC SYMPTOMS [None]
  - ASTHENIA [None]
